FAERS Safety Report 7911739-5 (Version None)
Quarter: 2011Q4

REPORT INFORMATION
  Report Type: 
  Country: None (occurrence: None)
  Receive Date: 20111114
  Receipt Date: 20111114
  Transmission Date: 20120403
  Serious: Yes (Life-Threatening, Hospitalization, Other)
  Sender: FDA-Public Use
  Company Number: None

PATIENT
  Age: 23 Year
  Sex: Female
  Weight: 136.07 kg

DRUGS (2)
  1. BYETTA [Suspect]
     Indication: DIABETES MELLITUS
     Dates: start: 20071001, end: 20071101
  2. VICTOZA [Concomitant]
     Indication: DIABETES MELLITUS
     Dates: start: 20100701, end: 20101001

REACTIONS (1)
  - THYROID CANCER [None]
